FAERS Safety Report 7617245-X (Version None)
Quarter: 2011Q3

REPORT INFORMATION
  Report Type: 
  Country: None (occurrence: None)
  Receive Date: 20110718
  Receipt Date: 20110704
  Transmission Date: 20111222
  Serious: No
  Sender: FDA-Public Use
  Company Number: BR-GENZYME-THYM-1002568

PATIENT
  Sex: Female

DRUGS (4)
  1. THYMOGLOBULIN [Suspect]
     Indication: BONE MARROW CONDITIONING REGIMEN
     Dosage: 5.0 MG/ML, UNK
  2. CORTICOSTEROIDS [Concomitant]
     Indication: PREMEDICATION
  3. OTHER ANALGESICS AND ANTIPYRETICS [Concomitant]
     Indication: PREMEDICATION
  4. ANTIHISTAMINES [Concomitant]
     Indication: PREMEDICATION

REACTIONS (5)
  - RASH [None]
  - PYREXIA [None]
  - HYPOTENSION [None]
  - CHILLS [None]
  - SHOCK [None]
